FAERS Safety Report 8628646 (Version 3)
Quarter: 2014Q1

REPORT INFORMATION
  Report Type: Spontaneous
  Country: CA (occurrence: CA)
  Receive Date: 20120621
  Receipt Date: 20140325
  Transmission Date: 20141002
  Serious: Yes (Other)
  Sender: FDA-Public Use
  Company Number: CA-ROCHE-1079630

PATIENT
  Age: 54 Year
  Sex: Female

DRUGS (6)
  1. XOLAIR [Suspect]
     Indication: ASTHMA
     Route: 058
     Dates: start: 20110517
  2. XOLAIR [Suspect]
     Route: 058
     Dates: start: 20110907
  3. XOLAIR [Suspect]
     Route: 058
     Dates: start: 20130730
  4. XOLAIR [Suspect]
     Route: 058
     Dates: start: 20140319
  5. ADVAIR [Concomitant]
  6. SALBUTAMOL [Concomitant]
     Route: 065
     Dates: start: 20110517

REACTIONS (8)
  - Myalgia [Recovered/Resolved]
  - Cough [Recovered/Resolved]
  - Rales [Unknown]
  - Hypertension [Recovered/Resolved]
  - Foot fracture [Unknown]
  - Respiratory disorder [Unknown]
  - Dyspnoea [Unknown]
  - Body temperature decreased [Unknown]
